FAERS Safety Report 9250853 (Version 1)
Quarter: 2013Q1

REPORT INFORMATION
  Report Type: Spontaneous
  Country: US (occurrence: None)
  Receive Date: 20130305
  Receipt Date: 20130305
  Transmission Date: 20140127
  Serious: Yes (Other)
  Sender: FDA-Public Use
  Company Number: 163-21880-12042105

PATIENT
  Age: 72 Year
  Sex: Female
  Weight: 70.76 kg

DRUGS (1)
  1. REVLIMID [Suspect]
     Indication: MYELODYSPLASTIC SYNDROME
     Route: 048
     Dates: start: 201203

REACTIONS (5)
  - Thrombocytopenia [None]
  - Haemoglobin decreased [None]
  - Asthenia [None]
  - Dyspnoea [None]
  - Fatigue [None]
